FAERS Safety Report 23233589 (Version 1)
Quarter: 2023Q4

REPORT INFORMATION
  Report Type: Spontaneous
  Country: TR (occurrence: None)
  Receive Date: 20231128
  Receipt Date: 20231128
  Transmission Date: 20240109
  Serious: Yes (Life-Threatening, Hospitalization, Other)
  Sender: FDA-Public Use
  Company Number: TR-MICRO LABS LIMITED-ML2023-06709

PATIENT
  Age: 16 Year
  Sex: Male

DRUGS (1)
  1. VERAPAMIL HYDROCHLORIDE [Suspect]
     Active Substance: VERAPAMIL HYDROCHLORIDE
     Indication: Suicide attempt
     Dosage: 20 TABLETS OF VERAPAMIL

REACTIONS (12)
  - Cardiogenic shock [Recovered/Resolved]
  - Electrocardiogram ST segment abnormal [Recovered/Resolved]
  - Electrocardiogram T wave abnormal [Recovered/Resolved]
  - Lactic acidosis [Recovered/Resolved]
  - Suicide attempt [Recovered/Resolved]
  - Hyperhidrosis [Recovered/Resolved]
  - Atrioventricular block complete [Recovered/Resolved]
  - Hypotension [Recovered/Resolved]
  - Dizziness [Recovered/Resolved]
  - Nausea [Recovered/Resolved]
  - Bradycardia [Recovered/Resolved]
  - Intentional overdose [Recovered/Resolved]
